FAERS Safety Report 12331513 (Version 1)
Quarter: 2016Q2

REPORT INFORMATION
  Report Type: Spontaneous
  Country: US (occurrence: None)
  Receive Date: 20160503
  Receipt Date: 20160503
  Transmission Date: 20160815
  Serious: Yes (Other)
  Sender: FDA-Public Use
  Company Number: None

PATIENT
  Age: 61 Year
  Sex: Female
  Weight: 56.7 kg

DRUGS (9)
  1. ACIPHEX [Concomitant]
     Active Substance: RABEPRAZOLE SODIUM
  2. ASPIRIN. [Concomitant]
     Active Substance: ASPIRIN
  3. TRAMADOL. [Concomitant]
     Active Substance: TRAMADOL
  4. LIPITOR [Concomitant]
     Active Substance: ATORVASTATIN CALCIUM
  5. ATENOLOL. [Concomitant]
     Active Substance: ATENOLOL
  6. AMITRIPTYLINE [Concomitant]
     Active Substance: AMITRIPTYLINE
  7. GABAPENTIN. [Concomitant]
     Active Substance: GABAPENTIN
  8. LISINOPRIL 10MG RWDZQ6, 10MG SOLCO HEALTHCARE [Suspect]
     Active Substance: LISINOPRIL
     Indication: HYPERTENSION
     Dosage: 12 TABLETS AT BEDTIME, TAKEN BY MOUTH
     Route: 048
     Dates: start: 20160415, end: 20160422
  9. FOSAMAX [Concomitant]
     Active Substance: ALENDRONATE SODIUM

REACTIONS (6)
  - Fatigue [None]
  - Feeling abnormal [None]
  - Tremor [None]
  - Asthenia [None]
  - Tinnitus [None]
  - Dizziness [None]

NARRATIVE: CASE EVENT DATE: 20160415
